FAERS Safety Report 22639749 (Version 1)
Quarter: 2023Q2

REPORT INFORMATION
  Report Type: Report from Study
  Country: IT (occurrence: IT)
  Receive Date: 20230626
  Receipt Date: 20230626
  Transmission Date: 20230722
  Serious: Yes (Hospitalization)
  Sender: FDA-Public Use
  Company Number: None

PATIENT
  Age: 33 Year
  Sex: Male

DRUGS (2)
  1. XANAX [Suspect]
     Active Substance: ALPRAZOLAM
     Indication: Product used for unknown indication
     Dosage: 2.5 MILLIGRAMS TOTAL,ROUTE OF ADMINISTRATION:ORAL
     Route: 048
     Dates: start: 20230422
  2. DELORAZEPAM [Suspect]
     Active Substance: DELORAZEPAM
     Indication: Product used for unknown indication
     Dosage: 40 MILLIGRAMS TOTAL, ROUTE OF ADMINISTRATION:ORAL
     Route: 048
     Dates: start: 20230422

REACTIONS (3)
  - Sopor [Recovering/Resolving]
  - Alcohol abuse [Recovering/Resolving]
  - Drug abuse [Recovering/Resolving]

NARRATIVE: CASE EVENT DATE: 20230422
